FAERS Safety Report 10808876 (Version 1)
Quarter: 2015Q1

REPORT INFORMATION
  Report Type: Report from Study
  Country: US (occurrence: US)
  Receive Date: 20150217
  Receipt Date: 20150217
  Transmission Date: 20150721
  Serious: No
  Sender: FDA-Public Use
  Company Number: US-ABBVIE-14K-163-1221255-00

PATIENT
  Age: 46 Year
  Sex: Male

DRUGS (5)
  1. FISH OIL [Concomitant]
     Active Substance: FISH OIL
     Indication: PRODUCT USED FOR UNKNOWN INDICATION
     Dosage: HIGH DOSE
  2. HUMIRA [Suspect]
     Active Substance: ADALIMUMAB
  3. HUMIRA [Suspect]
     Active Substance: ADALIMUMAB
     Indication: PSORIASIS
     Dosage: DAY ONE
     Dates: start: 20140401, end: 20140401
  4. RAMIPRIL. [Concomitant]
     Active Substance: RAMIPRIL
     Indication: CARDIOMYOPATHY
  5. COREG [Concomitant]
     Active Substance: CARVEDILOL
     Indication: CARDIOMYOPATHY

REACTIONS (1)
  - Injection site haemorrhage [Recovered/Resolved]

NARRATIVE: CASE EVENT DATE: 20140401
